FAERS Safety Report 10634016 (Version 1)
Quarter: 2014Q4

REPORT INFORMATION
  Report Type: Spontaneous
  Country: SI (occurrence: SI)
  Receive Date: 20141205
  Receipt Date: 20141205
  Transmission Date: 20150529
  Serious: Yes (Disabling, Other)
  Sender: FDA-Public Use
  Company Number: SG-ASTRAZENECA-2014SE91685

PATIENT
  Age: 68 Year
  Sex: Male

DRUGS (6)
  1. BIOPREXANIL [Concomitant]
     Dosage: 5 DOSE, 3 UNITS, TWO TIMES A DAY
  2. ASPIRIN PROTECT [Concomitant]
     Active Substance: ASPIRIN
  3. NEBILET [Concomitant]
     Active Substance: NEBIVOLOL
     Dosage: 2.5 DOSE, 3 UNIT
  4. BRILIQUE [Suspect]
     Active Substance: TICAGRELOR
     Indication: PROPHYLAXIS
     Route: 048
  5. EMOZUL [Concomitant]
     Dosage: 40 MG, 3 UNIT
  6. CRESTOR [Concomitant]
     Active Substance: ROSUVASTATIN CALCIUM
     Dosage: 1 DOSE, 32 UNITS

REACTIONS (6)
  - Epistaxis [Recovered/Resolved]
  - Chest pain [Recovered/Resolved]
  - Dyspnoea [Recovered/Resolved]
  - Contusion [Recovered/Resolved]
  - Insomnia [Recovered/Resolved]
  - Suffocation feeling [Recovered/Resolved]

NARRATIVE: CASE EVENT DATE: 20140616
